FAERS Safety Report 18438986 (Version 1)
Quarter: 2020Q4

REPORT INFORMATION
  Report Type: Spontaneous
  Country: US (occurrence: US)
  Receive Date: 20201029
  Receipt Date: 20201029
  Transmission Date: 20210114
  Serious: No
  Sender: FDA-Public Use
  Company Number: US-BIOGEN-2020BI00905440

PATIENT
  Sex: Female

DRUGS (10)
  1. TYLENOL EXTRA STRENGTH [Concomitant]
     Active Substance: ACETAMINOPHEN
     Route: 065
  2. TECFIDERA [Suspect]
     Active Substance: DIMETHYL FUMARATE
     Route: 065
  3. LYRICA [Concomitant]
     Active Substance: PREGABALIN
     Route: 065
  4. TECFIDERA [Suspect]
     Active Substance: DIMETHYL FUMARATE
     Route: 048
     Dates: start: 20200726, end: 20200801
  5. OXYTOCIN. [Concomitant]
     Active Substance: OXYTOCIN
     Route: 065
  6. TECFIDERA [Suspect]
     Active Substance: DIMETHYL FUMARATE
     Route: 048
  7. TECFIDERA [Suspect]
     Active Substance: DIMETHYL FUMARATE
     Route: 048
     Dates: start: 20200630
  8. FLUOXETINE [Concomitant]
     Active Substance: FLUOXETINE HYDROCHLORIDE
     Route: 065
  9. TECFIDERA [Suspect]
     Active Substance: DIMETHYL FUMARATE
     Indication: MULTIPLE SCLEROSIS
     Route: 048
     Dates: start: 20200626
  10. TECFIDERA [Suspect]
     Active Substance: DIMETHYL FUMARATE
     Route: 048
     Dates: start: 20200802

REACTIONS (28)
  - Balance disorder [Unknown]
  - Tremor [Recovered/Resolved with Sequelae]
  - Anxiety [Recovered/Resolved]
  - Haemorrhage [Recovered/Resolved]
  - Increased tendency to bruise [Not Recovered/Not Resolved]
  - Magnetic resonance imaging abnormal [Unknown]
  - Dry mouth [Unknown]
  - Drug ineffective [Unknown]
  - Mental fatigue [Not Recovered/Not Resolved]
  - Memory impairment [Not Recovered/Not Resolved]
  - Peripheral nerve injury [Unknown]
  - Dyskinesia [Recovered/Resolved with Sequelae]
  - Dyspepsia [Recovered/Resolved]
  - Asthenia [Not Recovered/Not Resolved]
  - Peripheral sensory neuropathy [Not Recovered/Not Resolved]
  - Pain in extremity [Unknown]
  - Skin atrophy [Recovered/Resolved]
  - Nausea [Recovered/Resolved with Sequelae]
  - Muscle spasms [Not Recovered/Not Resolved]
  - Gait disturbance [Unknown]
  - Carpal tunnel syndrome [Unknown]
  - Fatigue [Not Recovered/Not Resolved]
  - Feeling abnormal [Unknown]
  - Oral herpes [Not Recovered/Not Resolved]
  - Contusion [Unknown]
  - Musculoskeletal disorder [Unknown]
  - Chest pain [Unknown]
  - Foreign body in throat [Unknown]
